FAERS Safety Report 5365580-0 (Version None)
Quarter: 2007Q2

REPORT INFORMATION
  Report Type: 
  Country: None (occurrence: None)
  Receive Date: 20070621
  Receipt Date: 20070613
  Transmission Date: 20071010
  Serious: Yes (Life-Threatening)
  Sender: FDA-Public Use
  Company Number: US-BAXTER-2007BH005487

PATIENT
  Age: 69 Year
  Sex: Female

DRUGS (15)
  1. DOPAMINE HCL IN 5% DEXTROSE [Suspect]
     Indication: DYSPNOEA
     Dosage: DOSE UNIT:UNKNOWN
     Route: 041
     Dates: start: 20070613
  2. NEOSYNEPHRINE [Suspect]
     Indication: PULMONARY OEDEMA
     Dosage: DOSE UNIT:UNKNOWN
     Route: 041
     Dates: start: 20070613
  3. NEOSYNEPHRINE [Suspect]
     Indication: RESPIRATORY DISTRESS
     Dosage: DOSE UNIT:UNKNOWN
     Route: 041
     Dates: start: 20070613
  4. NOREPINEPHRINE [Suspect]
     Indication: PULMONARY OEDEMA
     Dosage: DOSE UNIT:UNKNOWN
     Route: 041
     Dates: start: 20070613
  5. NOREPINEPHRINE [Suspect]
     Indication: RESPIRATORY DISTRESS
     Dosage: DOSE UNIT:UNKNOWN
     Route: 041
     Dates: start: 20070613
  6. ASPIRIN [Concomitant]
     Indication: DRUG USE FOR UNKNOWN INDICATION
     Dosage: DOSE UNIT:UNKNOWN
     Route: 065
  7. COREG [Concomitant]
     Indication: DRUG USE FOR UNKNOWN INDICATION
     Dosage: DOSE UNIT:UNKNOWN
     Route: 065
  8. MONOPRIL [Concomitant]
     Indication: DRUG USE FOR UNKNOWN INDICATION
     Dosage: DOSE UNIT:UNKNOWN
     Route: 065
  9. LASIX [Concomitant]
     Indication: DRUG USE FOR UNKNOWN INDICATION
     Dosage: DOSE UNIT:UNKNOWN
     Route: 065
  10. CRESTOR [Concomitant]
     Indication: DRUG USE FOR UNKNOWN INDICATION
     Dosage: DOSE UNIT:UNKNOWN
     Route: 065
  11. ALDACTONE [Concomitant]
     Indication: DRUG USE FOR UNKNOWN INDICATION
     Dosage: DOSE UNIT:UNKNOWN
     Route: 065
  12. AVANDIA [Concomitant]
     Indication: DRUG USE FOR UNKNOWN INDICATION
     Dosage: DOSE UNIT:UNKNOWN
     Route: 065
  13. LANTUS [Concomitant]
     Indication: DRUG USE FOR UNKNOWN INDICATION
     Dosage: DOSE UNIT:UNKNOWN
     Route: 065
  14. INSULIN [Concomitant]
     Indication: DRUG USE FOR UNKNOWN INDICATION
     Dosage: DOSE UNIT:UNKNOWN
     Route: 065
  15. GLUCOPHAGE [Concomitant]
     Indication: DRUG USE FOR UNKNOWN INDICATION
     Dosage: DOSE UNIT:UNKNOWN
     Route: 065

REACTIONS (4)
  - BLOOD PRESSURE DECREASED [None]
  - CARDIAC ARREST [None]
  - DEVICE FAILURE [None]
  - VENTRICULAR TACHYCARDIA [None]
